FAERS Safety Report 9772539 (Version 2)
Quarter: 2013Q4

REPORT INFORMATION
  Report Type: Spontaneous
  Country: US (occurrence: US)
  Receive Date: 20131219
  Receipt Date: 20131219
  Transmission Date: 20140711
  Serious: Yes (Death, Hospitalization, Other)
  Sender: FDA-Public Use
  Company Number: US-009507513-2010SP036324

PATIENT
  Age: 27 Year
  Sex: Female

DRUGS (1)
  1. NUVARING [Suspect]
     Indication: PRODUCT USED FOR UNKNOWN INDICATION
     Route: 067
     Dates: start: 200801, end: 200806

REACTIONS (8)
  - Craniectomy [Unknown]
  - Death [Fatal]
  - Cerebrovascular accident [Unknown]
  - Surgery [Unknown]
  - Paralysis [Unknown]
  - Migraine [Unknown]
  - Cerebral haemorrhage [Unknown]
  - Cerebral thrombosis [Unknown]
